FAERS Safety Report 12214229 (Version 1)
Quarter: 2016Q1

REPORT INFORMATION
  Report Type: Spontaneous
  Country: PL (occurrence: PL)
  Receive Date: 20160328
  Receipt Date: 20160328
  Transmission Date: 20160526
  Serious: Yes (Other)
  Sender: FDA-Public Use
  Company Number: PL-MYLANLABS-2016M1012671

PATIENT

DRUGS (1)
  1. SIMVASTATIN. [Suspect]
     Active Substance: SIMVASTATIN
     Indication: HYPERCHOLESTEROLAEMIA
     Dosage: 20 MG, UNK

REACTIONS (5)
  - Retinopathy [Unknown]
  - Drug ineffective [Unknown]
  - Blood albumin abnormal [Unknown]
  - Blood cholesterol increased [Unknown]
  - Blood creatinine abnormal [Unknown]
